FAERS Safety Report 11896861 (Version 1)
Quarter: 2016Q1

REPORT INFORMATION
  Report Type: Spontaneous
  Country: US (occurrence: US)
  Receive Date: 20160107
  Receipt Date: 20160107
  Transmission Date: 20160526
  Serious: Yes (Death, Hospitalization, Other)
  Sender: FDA-Public Use
  Company Number: US-GLAXOSMITHKLINE-US2016GSK001010

PATIENT
  Age: 79 Year
  Sex: Female

DRUGS (11)
  1. DIPHENHYDRAMINE HCL [Suspect]
     Active Substance: DIPHENHYDRAMINE HYDROCHLORIDE
     Route: 048
  2. BUPROPION. [Suspect]
     Active Substance: BUPROPION
     Route: 048
  3. SERTRALINE [Suspect]
     Active Substance: SERTRALINE HYDROCHLORIDE
     Route: 048
  4. PROMETHAZINE [Suspect]
     Active Substance: PROMETHAZINE\PROMETHAZINE HYDROCHLORIDE
     Route: 048
  5. ACETAMINOPHEN + HYDROCODONE [Suspect]
     Active Substance: ACETAMINOPHEN\HYDROCODONE
     Route: 048
  6. TRAMADOL. [Suspect]
     Active Substance: TRAMADOL
     Route: 048
  7. BISOPROLOL [Suspect]
     Active Substance: BISOPROLOL
     Route: 048
  8. CLONIDINE. [Suspect]
     Active Substance: CLONIDINE
     Route: 048
  9. MELOXICAM. [Suspect]
     Active Substance: MELOXICAM
     Route: 048
  10. DILTIAZEM [Suspect]
     Active Substance: DILTIAZEM
     Route: 048
  11. CLONAZEPAM. [Suspect]
     Active Substance: CLONAZEPAM
     Route: 048

REACTIONS (1)
  - Completed suicide [Fatal]
